FAERS Safety Report 8262158-6 (Version None)
Quarter: 2012Q2

REPORT INFORMATION
  Report Type: 
  Country: None (occurrence: None)
  Receive Date: 20120402
  Receipt Date: 20120323
  Transmission Date: 20120825
  Serious: Yes (Other)
  Sender: FDA-Public Use
  Company Number: CL-400-2012

PATIENT
  Age: 48 Year
  Sex: Female
  Weight: 79 kg

DRUGS (3)
  1. METRONIDAZOLE [Suspect]
     Indication: INFECTION
     Dosage: 400MG ORAL
     Route: 048
     Dates: start: 20120308, end: 20120312
  2. AMOXICILLIN [Suspect]
     Indication: INFECTION
     Dosage: 500MG ORAL
     Route: 048
     Dates: start: 20120308, end: 20120312
  3. OMEPRAZOLE [Suspect]
     Indication: INFECTION
     Dosage: 20MG ORAL
     Route: 048
     Dates: start: 20120308, end: 20120312

REACTIONS (2)
  - HYPERTENSION [None]
  - OEDEMA [None]
